FAERS Safety Report 21653180 (Version 1)
Quarter: 2022Q4

REPORT INFORMATION
  Report Type: Report from Study
  Country: US (occurrence: US)
  Receive Date: 20221128
  Receipt Date: 20221128
  Transmission Date: 20230112
  Serious: No
  Sender: FDA-Public Use
  Company Number: US-ABBVIE-4175083

PATIENT
  Sex: Female

DRUGS (1)
  1. SKYRIZI [Suspect]
     Active Substance: RISANKIZUMAB-RZAA
     Indication: Psoriatic arthropathy
     Dosage: WEEK 4;  FORM STRENGTH: 150 MILLIGRAM
     Route: 058
     Dates: start: 20221009

REACTIONS (3)
  - Immunodeficiency [Unknown]
  - Pyrexia [Unknown]
  - Lymphadenopathy [Unknown]
